FAERS Safety Report 7879696-8 (Version None)
Quarter: 2011Q4

REPORT INFORMATION
  Report Type: 
  Country: None (occurrence: None)
  Receive Date: 20111101
  Receipt Date: 20110706
  Transmission Date: 20120403
  Serious: No
  Sender: FDA-Public Use
  Company Number: US-ABBOTT-09P-163-0495873-00

PATIENT
  Sex: Female
  Weight: 49.94 kg

DRUGS (1)
  1. BIAXIN [Suspect]
     Indication: INFECTION
     Dosage: UNSURE OF STRENGTH
     Route: 048
     Dates: start: 20000101, end: 20000101

REACTIONS (4)
  - NAUSEA [None]
  - HEADACHE [None]
  - VOMITING [None]
  - FEELING ABNORMAL [None]
